FAERS Safety Report 15791731 (Version 2)
Quarter: 2019Q1

REPORT INFORMATION
  Report Type: Spontaneous
  Country: JP (occurrence: JP)
  Receive Date: 20190105
  Receipt Date: 20190201
  Transmission Date: 20190417
  Serious: Yes (Hospitalization, Other)
  Sender: FDA-Public Use
  Company Number: JP-UNICHEM PHARMACEUTICALS (USA) INC-UCM201901-000003

PATIENT
  Age: 86 Year
  Sex: Female

DRUGS (2)
  1. METRONIDAZOLE. [Suspect]
     Active Substance: METRONIDAZOLE
     Indication: CLOSTRIDIUM DIFFICILE COLITIS
  2. TISSUE PLASMINOGEN ACTIVATOR [Concomitant]
     Active Substance: ALTEPLASE

REACTIONS (6)
  - Disorientation [Recovering/Resolving]
  - Toxic encephalopathy [Recovering/Resolving]
  - Epilepsy [Recovered/Resolved]
  - Dysarthria [Unknown]
  - Coma scale abnormal [Recovering/Resolving]
  - Muscular weakness [Not Recovered/Not Resolved]
